FAERS Safety Report 9517142 (Version 3)
Quarter: 2014Q1

REPORT INFORMATION
  Report Type: Report from Study
  Country: GB (occurrence: GB)
  Receive Date: 20130911
  Receipt Date: 20140121
  Transmission Date: 20141002
  Serious: Yes (Hospitalization)
  Sender: FDA-Public Use
  Company Number: GB-JNJFOC-20130903391

PATIENT
  Age: 78 Year
  Sex: Male
  Weight: 105.6 kg

DRUGS (1)
  1. ABIRATERONE ACETATE [Suspect]
     Indication: PROSTATE CANCER METASTATIC
     Route: 048
     Dates: start: 20130624, end: 20130827

REACTIONS (1)
  - Urosepsis [Not Recovered/Not Resolved]
